FAERS Safety Report 9744191 (Version 1)
Quarter: 2013Q4

REPORT INFORMATION
  Report Type: Spontaneous
  Country: US (occurrence: US)
  Receive Date: 20131210
  Receipt Date: 20131210
  Transmission Date: 20140711
  Serious: No
  Sender: FDA-Public Use
  Company Number: US-BIOGENIDEC-2013BI100075

PATIENT
  Age: 37 Year
  Sex: Female
  Weight: 72 kg

DRUGS (6)
  1. TECFIDERA [Suspect]
     Indication: PRODUCT USED FOR UNKNOWN INDICATION
     Route: 048
  2. MELOXICAM [Concomitant]
  3. TRI-PREVIFEM [Concomitant]
  4. VITAMIN C [Concomitant]
  5. VITAMIN D [Concomitant]
  6. ASPIRIN ADLT [Concomitant]

REACTIONS (2)
  - Flushing [Recovered/Resolved]
  - Erythema [Recovered/Resolved]
